FAERS Safety Report 12743209 (Version 2)
Quarter: 2016Q3

REPORT INFORMATION
  Report Type: Spontaneous
  Country: FR (occurrence: FR)
  Receive Date: 20160914
  Receipt Date: 20160923
  Transmission Date: 20161109
  Serious: Yes (Other)
  Sender: FDA-Public Use
  Company Number: FR-GILEAD-2016-0232032

PATIENT
  Age: 79 Year
  Sex: Male
  Weight: 75 kg

DRUGS (5)
  1. VIREAD [Concomitant]
     Active Substance: TENOFOVIR DISOPROXIL FUMARATE
     Dosage: 245 MG, UNK
     Route: 048
     Dates: start: 20150901
  2. ZELITREX [Concomitant]
     Active Substance: VALACYCLOVIR HYDROCHLORIDE
     Indication: PROPHYLAXIS
     Dosage: 500 MG, UNK
     Route: 048
     Dates: start: 20150801
  3. ZYDELIG [Suspect]
     Active Substance: IDELALISIB
     Dosage: 100 MG, UNK
     Route: 065
     Dates: end: 20160817
  4. WELLVONE [Suspect]
     Active Substance: ATOVAQUONE
     Indication: PROPHYLAXIS
     Dosage: 750 MG, UNK
     Route: 065
     Dates: start: 20150801, end: 20160817
  5. ZYDELIG [Suspect]
     Active Substance: IDELALISIB
     Indication: PRODUCT USED FOR UNKNOWN INDICATION
     Dosage: UNK
     Route: 065
     Dates: start: 20150928

REACTIONS (2)
  - Clostridium difficile colitis [Recovered/Resolved]
  - Campylobacter infection [Recovered/Resolved]

NARRATIVE: CASE EVENT DATE: 20160615
